FAERS Safety Report 21673527 (Version 1)
Quarter: 2022Q4

REPORT INFORMATION
  Report Type: Spontaneous
  Country: US (occurrence: US)
  Receive Date: 20221202
  Receipt Date: 20221202
  Transmission Date: 20230113
  Serious: Yes (Hospitalization)
  Sender: FDA-Public Use
  Company Number: US-MYLANLABS-2022M1134637

PATIENT
  Age: 40 Year
  Sex: Male

DRUGS (14)
  1. DOXORUBICIN [Suspect]
     Active Substance: DOXORUBICIN
     Indication: B precursor type acute leukaemia
     Dosage: UNK, CYCLE (ADMINISTERED UNDER THE HYPE..)
     Route: 065
     Dates: start: 2021, end: 202112
  2. METHOTREXATE [Suspect]
     Active Substance: METHOTREXATE
     Indication: B precursor type acute leukaemia
     Dosage: UNK, CYCLE (ADMINISTERED UNDER THE..)
     Route: 065
     Dates: start: 2021, end: 202112
  3. CYTARABINE [Suspect]
     Active Substance: CYTARABINE
     Indication: B precursor type acute leukaemia
     Dosage: UNK, CYCLE (ADMINISTERED UNDER THE HYPER..)
     Route: 065
     Dates: start: 2021, end: 202112
  4. DEXAMETHASONE [Suspect]
     Active Substance: DEXAMETHASONE
     Indication: B precursor type acute leukaemia
     Dosage: UNK, CYCLE (ADMINISTERED UNDER THE HYPER..)
     Route: 065
     Dates: start: 2021, end: 202112
  5. DEXAMETHASONE [Suspect]
     Active Substance: DEXAMETHASONE
     Indication: COVID-19
     Dosage: UNK
     Route: 065
     Dates: start: 2022, end: 202204
  6. PREDNISONE [Suspect]
     Active Substance: PREDNISONE
     Indication: COVID-19
     Dosage: 0.5 MILLIGRAM/KILOGRAM (AT A TAPERING SCHEDULE)
     Route: 065
     Dates: start: 202204, end: 202205
  7. RITUXIMAB [Suspect]
     Active Substance: RITUXIMAB
     Indication: B precursor type acute leukaemia
     Dosage: 375 MILLIGRAM/SQ. METER, CYCLE
     Route: 042
     Dates: start: 2021, end: 202112
  8. CYCLOPHOSPHAMIDE [Suspect]
     Active Substance: CYCLOPHOSPHAMIDE
     Indication: B precursor type acute leukaemia
     Dosage: UNK, CYCLE (ADMINISTERED UNDER THE..)
     Route: 065
     Dates: start: 2021, end: 202112
  9. VINCRISTINE [Suspect]
     Active Substance: VINCRISTINE
     Indication: B precursor type acute leukaemia
     Dosage: UNK, CYCLE (ADMINISTERED UNDER THE HYPER..)
     Route: 065
     Dates: start: 2021, end: 202112
  10. REGEN-COV [Suspect]
     Active Substance: CASIRIVIMAB\IMDEVIMAB
     Indication: COVID-19 prophylaxis
     Dosage: UNK
     Route: 042
     Dates: start: 2021
  11. SOTROVIMAB [Suspect]
     Active Substance: SOTROVIMAB
     Indication: COVID-19
     Dosage: UNK
     Route: 042
     Dates: start: 202201
  12. PAXLOVID [Concomitant]
     Active Substance: NIRMATRELVIR\RITONAVIR
     Indication: COVID-19
     Dosage: UNK
     Route: 065
     Dates: start: 202204, end: 202205
  13. REMDESIVIR [Concomitant]
     Active Substance: REMDESIVIR
     Indication: COVID-19
     Dosage: UNK
     Route: 042
     Dates: start: 202203, end: 202203
  14. AMBISOME [Concomitant]
     Active Substance: AMPHOTERICIN B
     Indication: Prophylaxis
     Dosage: 5 MILLIGRAM/KILOGRAM
     Route: 065

REACTIONS (6)
  - COVID-19 [Recovering/Resolving]
  - Transaminases increased [Recovered/Resolved]
  - Thrombocytopenia [Recovered/Resolved]
  - Lymphopenia [Recovered/Resolved]
  - Drug ineffective for unapproved indication [Unknown]
  - Off label use [Unknown]
